FAERS Safety Report 13546636 (Version 2)
Quarter: 2017Q2

REPORT INFORMATION
  Report Type: Spontaneous
  Country: US (occurrence: US)
  Receive Date: 20170515
  Receipt Date: 20170516
  Transmission Date: 20170830
  Serious: Yes (Life-Threatening, Hospitalization)
  Sender: FDA-Public Use
  Company Number: US-GUERBET-US-20170076

PATIENT
  Age: 5 Year
  Sex: Male
  Weight: 19.9 kg

DRUGS (1)
  1. OPTIRAY [Suspect]
     Active Substance: IOVERSOL
     Indication: COMPUTERISED TOMOGRAM
     Route: 042
     Dates: start: 20170429, end: 20170429

REACTIONS (10)
  - Anaphylactic reaction [Unknown]
  - Hepatic enzyme increased [Unknown]
  - Dehydration [Unknown]
  - Diarrhoea [Unknown]
  - Vomiting [Unknown]
  - White blood cell count increased [Unknown]
  - Wheezing [Unknown]
  - Chest pain [Unknown]
  - Oxygen saturation decreased [Unknown]
  - Generalised erythema [Unknown]

NARRATIVE: CASE EVENT DATE: 20170429
